FAERS Safety Report 24329552 (Version 8)
Quarter: 2025Q1

REPORT INFORMATION
  Report Type: Report from Study
  Country: US (occurrence: US)
  Receive Date: 20240917
  Receipt Date: 20250326
  Transmission Date: 20250408
  Serious: Yes (Other)
  Sender: TAKEDA
  Company Number: US-TAKEDA-2021TUS069988

PATIENT
  Age: 70 Year
  Sex: Female

DRUGS (13)
  1. VEDOLIZUMAB [Suspect]
     Active Substance: VEDOLIZUMAB
     Indication: Colitis ulcerative
  2. VEDOLIZUMAB [Suspect]
     Active Substance: VEDOLIZUMAB
     Indication: Colitis ulcerative
     Dosage: 108 MILLIGRAM, Q2WEEKS
  3. VEDOLIZUMAB [Suspect]
     Active Substance: VEDOLIZUMAB
     Dosage: 108 MILLIGRAM, Q2WEEKS
  4. VEDOLIZUMAB [Suspect]
     Active Substance: VEDOLIZUMAB
  5. VEDOLIZUMAB [Suspect]
     Active Substance: VEDOLIZUMAB
  6. TRINTELLIX [Suspect]
     Active Substance: VORTIOXETINE HYDROBROMIDE
     Indication: Product used for unknown indication
  7. VALIUM [Concomitant]
     Active Substance: DIAZEPAM
  8. CHONDROITIN SULFATE (BOVINE)\GLUCOSAMINE HYDROCHLORIDE [Concomitant]
     Active Substance: CHONDROITIN SULFATE (BOVINE)\GLUCOSAMINE HYDROCHLORIDE
  9. ST. JOHN^S WORT [Concomitant]
     Active Substance: ST. JOHN^S WORT
  10. Slow magnesium chloride with calcium [Concomitant]
  11. BENADRYL [Concomitant]
     Active Substance: DIPHENHYDRAMINE HYDROCHLORIDE
  12. VITAMIN D3 [Concomitant]
     Active Substance: CHOLECALCIFEROL
  13. JWH-018 [Concomitant]
     Active Substance: JWH-018

REACTIONS (34)
  - Colitis ulcerative [Not Recovered/Not Resolved]
  - Drug ineffective [Not Recovered/Not Resolved]
  - Immunisation reaction [Unknown]
  - Feeling abnormal [Unknown]
  - Dry skin [Unknown]
  - Oropharyngeal pain [Unknown]
  - Pyrexia [Unknown]
  - Superficial injury of eye [Unknown]
  - Dysphonia [Unknown]
  - Dysphagia [Unknown]
  - Therapeutic reaction time decreased [Unknown]
  - Gastrointestinal disorder [Unknown]
  - Gastrointestinal pain [Unknown]
  - Musculoskeletal chest pain [Recovering/Resolving]
  - Rash pruritic [Unknown]
  - Device malfunction [Unknown]
  - Device leakage [Unknown]
  - Product distribution issue [Unknown]
  - Inappropriate schedule of product administration [Unknown]
  - Diarrhoea [Unknown]
  - Dizziness [Recovering/Resolving]
  - Rash [Unknown]
  - Headache [Recovered/Resolved]
  - Back pain [Unknown]
  - Blood glucose increased [Recovering/Resolving]
  - Anion gap increased [Recovering/Resolving]
  - Mean platelet volume decreased [Recovering/Resolving]
  - C-reactive protein increased [Recovering/Resolving]
  - Anxiety [Not Recovered/Not Resolved]
  - Device use error [Not Recovered/Not Resolved]
  - Product dose omission issue [Unknown]
  - Dyspnoea [Recovering/Resolving]
  - Muscle spasms [Recovering/Resolving]
  - Fatigue [Not Recovered/Not Resolved]

NARRATIVE: CASE EVENT DATE: 20231001
